FAERS Safety Report 7374594-0 (Version None)
Quarter: 2011Q1

REPORT INFORMATION
  Report Type: 
  Country: None (occurrence: None)
  Receive Date: 20110325
  Receipt Date: 20100416
  Transmission Date: 20110831
  Serious: No
  Sender: FDA-Public Use
  Company Number: US-MYLANLABS-2010S1006789

PATIENT
  Sex: Female

DRUGS (9)
  1. TAGAMET [Concomitant]
  2. TYLENOL W/ CODEINE NO. 3 [Concomitant]
  3. TOPAMAX [Concomitant]
  4. LOPRESSOR [Concomitant]
  5. FENTANYL-100 [Suspect]
     Indication: PAIN
     Dosage: Q72H
     Route: 062
     Dates: start: 20080101
  6. NEURONTIN [Concomitant]
  7. ALBUTEROL [Concomitant]
  8. ADVAIR DISKUS 100/50 [Concomitant]
  9. CYMBALTA [Concomitant]

REACTIONS (2)
  - HYPERHIDROSIS [None]
  - MALAISE [None]
